FAERS Safety Report 8582561-4 (Version None)
Quarter: 2012Q3

REPORT INFORMATION
  Report Type: 
  Country: None (occurrence: None)
  Receive Date: 20120809
  Receipt Date: 20120731
  Transmission Date: 20120928
  Serious: Yes (Hospitalization)
  Sender: FDA-Public Use
  Company Number: US-ASTRAZENECA-2012SE53980

PATIENT
  Age: 20 Year
  Sex: Male

DRUGS (11)
  1. QUETIAPINE [Suspect]
     Indication: ANXIETY
     Route: 048
  2. ESCITALOPRAM [Suspect]
     Indication: ANXIETY
     Route: 048
  3. ESCITALOPRAM [Suspect]
     Dosage: OVERDOSE
     Route: 048
  4. CLONAZEPAM [Suspect]
     Indication: ANXIETY
  5. PERCOCET [Suspect]
     Indication: DEPRESSION
  6. ESCITALOPRAM [Suspect]
     Indication: DEPRESSION
     Route: 048
  7. PERCOCET [Suspect]
     Indication: ANXIETY
  8. CLONAZEPAM [Suspect]
     Indication: DEPRESSION
  9. QUETIAPINE [Suspect]
     Indication: DEPRESSION
     Route: 048
  10. ESCITALOPRAM [Suspect]
     Dosage: OVERDOSE
     Route: 048
  11. COCAINE [Suspect]

REACTIONS (3)
  - INTENTIONAL DRUG MISUSE [None]
  - INTENTIONAL OVERDOSE [None]
  - SEROTONIN SYNDROME [None]
